FAERS Safety Report 9165932 (Version 3)
Quarter: 2013Q2

REPORT INFORMATION
  Report Type: Report from Study
  Country: US (occurrence: US)
  Receive Date: 20130315
  Receipt Date: 20130410
  Transmission Date: 20140414
  Serious: Yes (Hospitalization)
  Sender: FDA-Public Use
  Company Number: US-JNJFOC-20130306602

PATIENT
  Age: 19 Year
  Sex: Female
  Weight: 63.4 kg

DRUGS (8)
  1. REMICADE [Suspect]
     Indication: CROHN^S DISEASE
     Route: 042
     Dates: start: 20120625
  2. REMICADE [Suspect]
     Indication: CROHN^S DISEASE
     Route: 042
     Dates: start: 20071106
  3. PROMETHAZINE [Concomitant]
     Route: 065
  4. TRAMADOL [Concomitant]
     Route: 065
  5. PROGESTERONE [Concomitant]
     Route: 065
  6. LUPRON [Concomitant]
     Route: 065
  7. LEXAPRO [Concomitant]
     Route: 065
  8. BENTYL [Concomitant]
     Route: 065

REACTIONS (1)
  - Hyperaesthesia [Recovered/Resolved]
